FAERS Safety Report 15198423 (Version 2)
Quarter: 2018Q4

REPORT INFORMATION
  Report Type: Report from Study
  Country: US (occurrence: US)
  Receive Date: 20180725
  Receipt Date: 20181017
  Transmission Date: 20190204
  Serious: No
  Sender: FDA-Public Use
  Company Number: US-AMGEN-USASL2018095444

PATIENT
  Age: 69 Year
  Sex: Female

DRUGS (8)
  1. REPATHA [Suspect]
     Active Substance: EVOLOCUMAB
     Indication: CEREBRAL ARTERY OCCLUSION
  2. REPATHA [Suspect]
     Active Substance: EVOLOCUMAB
     Indication: TRANSIENT ISCHAEMIC ATTACK
  3. REPATHA [Suspect]
     Active Substance: EVOLOCUMAB
     Indication: AORTIC ARTERIOSCLEROSIS
  4. METFORMIN [Suspect]
     Active Substance: METFORMIN HYDROCHLORIDE
     Indication: PRODUCT USED FOR UNKNOWN INDICATION
     Dosage: UNK
     Route: 065
  5. REPATHA [Suspect]
     Active Substance: EVOLOCUMAB
     Indication: TYPE V HYPERLIPIDAEMIA
     Dosage: 140 MG, Q2WK
     Route: 058
  6. REPATHA [Suspect]
     Active Substance: EVOLOCUMAB
     Indication: CEREBRAL INFARCTION
  7. REPATHA [Suspect]
     Active Substance: EVOLOCUMAB
     Indication: PRECEREBRAL ARTERY OCCLUSION
  8. REPATHA [Suspect]
     Active Substance: EVOLOCUMAB
     Indication: CEREBROVASCULAR DISORDER

REACTIONS (2)
  - Diarrhoea [Unknown]
  - Muscle spasms [Unknown]

NARRATIVE: CASE EVENT DATE: 2018
